FAERS Safety Report 6679468-6 (Version None)
Quarter: 2010Q2

REPORT INFORMATION
  Report Type: 
  Country: None (occurrence: None)
  Receive Date: 20100413
  Receipt Date: 20100330
  Transmission Date: 20101027
  Serious: Yes (Other)
  Sender: FDA-Public Use
  Company Number: PHHY2010US20539

PATIENT
  Sex: Female

DRUGS (18)
  1. RECLAST [Suspect]
     Dosage: 5 MG
     Route: 042
     Dates: start: 20080101
  2. RECLAST [Suspect]
     Dosage: UNK
     Route: 042
     Dates: start: 20090101
  3. FORTEO [Suspect]
     Dosage: UNK
  4. FOSAMAX [Suspect]
  5. ACTONEL [Suspect]
  6. BONIVA [Suspect]
  7. PREDNISONE [Concomitant]
  8. FOLIC ACID [Concomitant]
  9. VITAMIN B6 [Concomitant]
  10. VITAMIN B-12 [Concomitant]
  11. DIOVAN [Concomitant]
  12. CALCIUM [Concomitant]
  13. VITAMIN D [Concomitant]
  14. CLONAZEPAM [Concomitant]
  15. LASIX [Concomitant]
  16. LEVOXYL [Concomitant]
  17. NORTRIPTYLINE HCL [Concomitant]
  18. POTASSIUM [Concomitant]

REACTIONS (3)
  - DRUG INEFFECTIVE [None]
  - PAIN [None]
  - SPINAL COMPRESSION FRACTURE [None]
